FAERS Safety Report 5689036-0 (Version None)
Quarter: 2008Q1

REPORT INFORMATION
  Report Type: 
  Country: None (occurrence: None)
  Receive Date: 20080331
  Receipt Date: 20080327
  Transmission Date: 20080703
  Serious: Yes (Death)
  Sender: FDA-Public Use
  Company Number: B0445640A

PATIENT
  Age: 73 Year
  Sex: Male

DRUGS (12)
  1. LAMICTAL [Suspect]
     Indication: EPILEPSY
     Dosage: 100MG TWICE PER DAY
     Route: 048
     Dates: start: 20060401
  2. ANTIBIOTICS [Concomitant]
  3. CHEMOTHERAPY [Concomitant]
     Indication: BRAIN NEOPLASM
  4. RIVOTRIL [Concomitant]
     Indication: EPILEPSY
     Dates: start: 20060401
  5. NORVASC [Concomitant]
     Route: 048
  6. DEXAMETHASONE TAB [Concomitant]
     Indication: NEOPLASM
     Route: 048
     Dates: start: 20060401
  7. GLUCOPHAGE [Concomitant]
     Route: 048
  8. INSULIN [Concomitant]
     Route: 058
  9. ZESTORETIC [Concomitant]
     Route: 048
  10. FRAGMIN [Concomitant]
     Indication: PROPHYLAXIS
     Route: 058
  11. DIFLUCAN [Concomitant]
     Route: 048
  12. ADENOSINE [Concomitant]

REACTIONS (7)
  - EPIDERMOLYSIS [None]
  - ERYTHEMA [None]
  - LOCALISED OEDEMA [None]
  - OEDEMA PERIPHERAL [None]
  - PRURITUS [None]
  - SWELLING FACE [None]
  - TOXIC EPIDERMAL NECROLYSIS [None]
